FAERS Safety Report 5405373-9 (Version None)
Quarter: 2007Q3

REPORT INFORMATION
  Report Type: 
  Country: None (occurrence: None)
  Receive Date: 20070803
  Receipt Date: 20070724
  Transmission Date: 20080115
  Serious: Yes (Other)
  Sender: FDA-Public Use
  Company Number: US-PFIZER INC-2007062683

PATIENT
  Sex: Female
  Weight: 77.272 kg

DRUGS (4)
  1. CHANTIX [Suspect]
     Indication: SMOKING CESSATION THERAPY
  2. DEPAKOTE [Concomitant]
  3. CONTRACEPTIVE, UNSPECIFIED [Concomitant]
  4. VITAMIN B [Concomitant]

REACTIONS (5)
  - ABNORMAL BEHAVIOUR [None]
  - ASPIRATION [None]
  - DEPRESSION [None]
  - DYSPNOEA [None]
  - EATING DISORDER [None]
